FAERS Safety Report 5625026-1 (Version None)
Quarter: 2008Q1

REPORT INFORMATION
  Report Type: 
  Country: None (occurrence: None)
  Receive Date: 20080213
  Receipt Date: 20080207
  Transmission Date: 20080703
  Serious: Yes (Hospitalization)
  Sender: FDA-Public Use
  Company Number: SE-ASTRAZENECA-2008SE00764

PATIENT
  Age: 32696 Day
  Sex: Female

DRUGS (10)
  1. METOPROLOL TARTRATE [Suspect]
     Indication: ESSENTIAL HYPERTENSION
     Route: 048
  2. ENALAPRIL MALEATE [Suspect]
     Indication: ESSENTIAL HYPERTENSION
     Route: 048
     Dates: end: 20071102
  3. COSOPT [Concomitant]
     Route: 047
  4. IMPUGAN [Concomitant]
  5. NITROMEX [Concomitant]
     Route: 060
  6. SUSCARD [Concomitant]
     Route: 002
  7. ASPIRIN [Concomitant]
  8. IMPORTAL EX-LAX [Concomitant]
     Route: 048
  9. IMDUR [Concomitant]
  10. ALPHAGAN [Concomitant]
     Route: 047

REACTIONS (1)
  - ORTHOSTATIC HYPOTENSION [None]
